FAERS Safety Report 18908735 (Version 1)
Quarter: 2021Q1

REPORT INFORMATION
  Report Type: Spontaneous
  Country: IR (occurrence: IR)
  Receive Date: 20210218
  Receipt Date: 20210218
  Transmission Date: 20210420
  Serious: Yes (Other)
  Sender: FDA-Public Use
  Company Number: IR-SGP-000004

PATIENT
  Age: 14 Month
  Weight: 12 kg

DRUGS (2)
  1. IMMUNOGLOBULINS NOS [Suspect]
     Active Substance: IMMUNE GLOBULIN NOS
     Indication: COVID-19
     Route: 042
  2. METHYLPREDNISOLONE. [Suspect]
     Active Substance: METHYLPREDNISOLONE
     Indication: COVID-19
     Route: 065

REACTIONS (2)
  - Coronary artery aneurysm [Recovering/Resolving]
  - Product use in unapproved indication [Unknown]
